FAERS Safety Report 7960966-X (Version None)
Quarter: 2011Q4

REPORT INFORMATION
  Report Type: 
  Country: None (occurrence: None)
  Receive Date: 20111207
  Receipt Date: 20111126
  Transmission Date: 20120403
  Serious: Yes (Other)
  Sender: FDA-Public Use
  Company Number: US-JNJCP-30000080187

PATIENT
  Sex: Female

DRUGS (1)
  1. NTG OIL-FREE ACNE WASH USA NTOFAWUS [Suspect]
     Indication: ACNE
     Route: 061

REACTIONS (5)
  - APPLICATION SITE DRYNESS [None]
  - APPLICATION SITE PRURITUS [None]
  - APPLICATION SITE SWELLING [None]
  - APPLICATION SITE ERYTHEMA [None]
  - APPLICATION SITE PAIN [None]
